FAERS Safety Report 5316839-4 (Version None)
Quarter: 2007Q2

REPORT INFORMATION
  Report Type: 
  Country: None (occurrence: None)
  Receive Date: 20070501
  Receipt Date: 20070501
  Transmission Date: 20071010
  Serious: Yes (Hospitalization)
  Sender: FDA-Public Use
  Company Number: None

PATIENT
  Age: 72 Year
  Sex: Male

DRUGS (5)
  1. PHOSPHOSODA GINGER LEMON [Suspect]
     Indication: COLONOSCOPY
     Dosage: 45 ML;X1;PO
     Route: 048
     Dates: start: 20050920, end: 20050921
  2. PLENDIL [Concomitant]
  3. MULTI-VITAMINS [Concomitant]
  4. ECOTRIN [Concomitant]
  5. FOLIC ACID [Concomitant]

REACTIONS (8)
  - ANAEMIA [None]
  - BLOOD POTASSIUM INCREASED [None]
  - DIZZINESS [None]
  - HYPERHOMOCYSTEINAEMIA [None]
  - HYPERTENSION [None]
  - RENAL FAILURE ACUTE [None]
  - RENAL FAILURE CHRONIC [None]
  - RENAL HYPERTENSION [None]
